FAERS Safety Report 21579593 (Version 1)
Quarter: 2022Q4

REPORT INFORMATION
  Report Type: Spontaneous
  Country: CN (occurrence: CN)
  Receive Date: 20221110
  Receipt Date: 20221110
  Transmission Date: 20230113
  Serious: Yes (Other)
  Sender: FDA-Public Use
  Company Number: CN-PFIZER INC-PV202200099606

PATIENT
  Age: 35 Year
  Sex: Male

DRUGS (5)
  1. EPIRUBICIN [Suspect]
     Active Substance: EPIRUBICIN
     Indication: Primary mediastinal large B-cell lymphoma
     Dosage: 10 MG, 2X/DAY
     Route: 041
     Dates: start: 20221014, end: 20221018
  2. ETOPOSIDE [Suspect]
     Active Substance: ETOPOSIDE
     Indication: Primary mediastinal large B-cell lymphoma
     Dosage: 33 MG, 2X/DAY
     Route: 041
     Dates: start: 20221014, end: 20221018
  3. RITUXIMAB [Suspect]
     Active Substance: RITUXIMAB
     Indication: Primary mediastinal large B-cell lymphoma
     Dosage: 500 MG, 1X/DAY
     Route: 041
     Dates: start: 20221013, end: 20221014
  4. CYCLOPHOSPHAMIDE [Suspect]
     Active Substance: CYCLOPHOSPHAMIDE
     Indication: Primary mediastinal large B-cell lymphoma
     Dosage: 1 G, 1X/DAY
     Route: 041
     Dates: start: 20221018, end: 20221019
  5. VINDESINE SULFATE [Suspect]
     Active Substance: VINDESINE SULFATE
     Indication: Primary mediastinal large B-cell lymphoma
     Dosage: 0.4 MG, 2X/DAY
     Route: 041
     Dates: start: 20221014, end: 20221018

REACTIONS (2)
  - Drug-induced liver injury [Recovered/Resolved]
  - Blood bilirubin increased [Recovered/Resolved]

NARRATIVE: CASE EVENT DATE: 20221020
